FAERS Safety Report 7919153-3 (Version None)
Quarter: 2011Q4

REPORT INFORMATION
  Report Type: 
  Country: None (occurrence: None)
  Receive Date: 20111117
  Receipt Date: 20111108
  Transmission Date: 20120403
  Serious: Yes (Hospitalization)
  Sender: FDA-Public Use
  Company Number: DE-ROCHE-712363

PATIENT
  Sex: Female
  Weight: 58 kg

DRUGS (7)
  1. KEVATRIL [Concomitant]
  2. EPIRUBICIN HYDROCHLORIDE [Suspect]
     Indication: BREAST CANCER
     Dosage: DOSE: 90 MG/ML
     Route: 042
  3. CYCLOPHOSPHAMIDE [Suspect]
     Indication: BREAST CANCER
     Dosage: FORM: INFUSION PER PROTOCOL
     Route: 042
  4. RANITIC [Concomitant]
  5. FENISTIL [Concomitant]
  6. HERCEPTIN [Suspect]
     Indication: BREAST CANCER
     Dosage: FORM: INFUSION PER PROTOCOL
     Route: 042
  7. DEXAMETHASONE [Concomitant]

REACTIONS (1)
  - INFECTION [None]
